FAERS Safety Report 7058135-3 (Version None)
Quarter: 2010Q4

REPORT INFORMATION
  Report Type: 
  Country: None (occurrence: None)
  Receive Date: 20101022
  Receipt Date: 20101014
  Transmission Date: 20110411
  Serious: Yes (Hospitalization, Disabling, Other)
  Sender: FDA-Public Use
  Company Number: US-MERCK-0811USA02807

PATIENT
  Age: 85 Year
  Sex: Female

DRUGS (2)
  1. FOSAMAX [Suspect]
     Indication: OSTEOPOROSIS
     Route: 048
     Dates: start: 20030701, end: 20060501
  2. CALTRATE + D [Concomitant]
     Indication: OSTEOPOROSIS
     Route: 065
     Dates: start: 20030601

REACTIONS (23)
  - ABSCESS [None]
  - ACETABULUM FRACTURE [None]
  - ACTINOMYCOSIS [None]
  - ARTERIOSCLEROSIS CORONARY ARTERY [None]
  - ATRIAL FIBRILLATION [None]
  - DEHYDRATION [None]
  - DENTAL CARIES [None]
  - EPISTAXIS [None]
  - EXOSTOSIS [None]
  - FALL [None]
  - GASTROENTERITIS [None]
  - GINGIVAL ULCERATION [None]
  - HAEMOPTYSIS [None]
  - HYPERLIPIDAEMIA [None]
  - HYPERTENSION [None]
  - HYPERTENSIVE HEART DISEASE [None]
  - IMPAIRED HEALING [None]
  - JAW DISORDER [None]
  - OSTEOMYELITIS [None]
  - OSTEONECROSIS OF JAW [None]
  - TOOTH ABSCESS [None]
  - TOOTH FRACTURE [None]
  - TOOTH LOSS [None]
